FAERS Safety Report 17273727 (Version 3)
Quarter: 2020Q1

REPORT INFORMATION
  Report Type: Report from Study
  Country: US (occurrence: US)
  Receive Date: 20200115
  Receipt Date: 20200330
  Transmission Date: 20200409
  Serious: Yes (Other)
  Sender: FDA-Public Use
  Company Number: US-GLAXOSMITHKLINE-2019-TSO01942-US

PATIENT
  Age: 80 Year
  Sex: Female
  Weight: 69.39 kg

DRUGS (31)
  1. NIRAPARIB [Suspect]
     Active Substance: NIRAPARIB
     Dosage: 200 MG, QPM WITHOUT FOOD
     Route: 048
     Dates: start: 20190725
  2. NIRAPARIB [Suspect]
     Active Substance: NIRAPARIB
     Dosage: 100 MG, QD
     Route: 048
  3. CALCIUM [Concomitant]
     Active Substance: CALCIUM
     Indication: PRODUCT USED FOR UNKNOWN INDICATION
     Dosage: UNK
  4. NIRAPARIB [Suspect]
     Active Substance: NIRAPARIB
     Dosage: 300 MG, QPM
     Dates: start: 20190620, end: 20190718
  5. NIRAPARIB [Suspect]
     Active Substance: NIRAPARIB
     Dosage: 200 MG, QD
     Dates: end: 20200130
  6. OMEPRAZOLE. [Concomitant]
     Active Substance: OMEPRAZOLE
     Indication: PRODUCT USED FOR UNKNOWN INDICATION
     Dosage: UNK
  7. ALOE VERA [Concomitant]
     Active Substance: ALOE VERA LEAF
     Dosage: UNK
  8. AMPICILLIN [Concomitant]
     Active Substance: AMPICILLIN
     Dosage: UNK
  9. CLOBETASOL [Concomitant]
     Active Substance: CLOBETASOL
     Indication: PRODUCT USED FOR UNKNOWN INDICATION
     Dosage: UNK
  10. DEXAMETHASONE. [Concomitant]
     Active Substance: DEXAMETHASONE
     Indication: PRODUCT USED FOR UNKNOWN INDICATION
     Dosage: UNK
  11. LORAZEPAM. [Concomitant]
     Active Substance: LORAZEPAM
     Indication: PRODUCT USED FOR UNKNOWN INDICATION
     Dosage: UNK
  12. PREMARIN [Concomitant]
     Active Substance: ESTROGENS, CONJUGATED
     Indication: PRODUCT USED FOR UNKNOWN INDICATION
     Dosage: UNK
  13. REQUIP [Concomitant]
     Active Substance: ROPINIROLE HYDROCHLORIDE
     Indication: PRODUCT USED FOR UNKNOWN INDICATION
     Dosage: UNK
  14. NIRAPARIB [Suspect]
     Active Substance: NIRAPARIB
     Dosage: 200 MG, QPM WITHOUT FOOD
     Route: 048
  15. NIRAPARIB [Suspect]
     Active Substance: NIRAPARIB
     Dosage: 200 MG, QD
     Route: 048
  16. BECLOMETHASONE [Concomitant]
     Active Substance: BECLOMETHASONE
     Indication: PRODUCT USED FOR UNKNOWN INDICATION
     Dosage: UNK
  17. CYANOCOBALAMIN. [Concomitant]
     Active Substance: CYANOCOBALAMIN
     Indication: PRODUCT USED FOR UNKNOWN INDICATION
     Dosage: UNK
  18. HYDROXYCHLOROQUINE [Concomitant]
     Active Substance: HYDROXYCHLOROQUINE
     Indication: PRODUCT USED FOR UNKNOWN INDICATION
     Dosage: UNK
  19. MONTELUKAST [Concomitant]
     Active Substance: MONTELUKAST SODIUM
     Indication: PRODUCT USED FOR UNKNOWN INDICATION
     Dosage: UNK
  20. PENTOSAN POLYSULFATE [Concomitant]
     Active Substance: PENTOSAN POLYSULFATE
     Indication: PRODUCT USED FOR UNKNOWN INDICATION
     Dosage: UNK
  21. PROCHLORPERAZINE. [Concomitant]
     Active Substance: PROCHLORPERAZINE
     Indication: PRODUCT USED FOR UNKNOWN INDICATION
     Dosage: UNK
  22. EMLA [Concomitant]
     Active Substance: LIDOCAINE\PRILOCAINE
     Indication: PRODUCT USED FOR UNKNOWN INDICATION
     Dosage: UNK
  23. GABAPENTIN. [Concomitant]
     Active Substance: GABAPENTIN
     Indication: NEUROPATHY PERIPHERAL
     Dosage: 1 DF, QD (400 MG TAKE ONE AT BEDTIME)
  24. PYRIDOXINE [Concomitant]
     Active Substance: PYRIDOXINE
     Indication: PRODUCT USED FOR UNKNOWN INDICATION
     Dosage: UNK
  25. NIRAPARIB [Suspect]
     Active Substance: NIRAPARIB
     Indication: OVARIAN CANCER
     Dosage: 300 MG, QPM W/O FOOD
     Route: 048
     Dates: start: 20190524, end: 20190611
  26. AMOXICILLIN. [Suspect]
     Active Substance: AMOXICILLIN
     Indication: PRODUCT USED FOR UNKNOWN INDICATION
     Dosage: 875 MG, BID
  27. DIPHENOXYLATE [Concomitant]
     Active Substance: DIPHENOXYLATE
     Indication: PRODUCT USED FOR UNKNOWN INDICATION
     Dosage: UNK
  28. GLUCOSAMINE [Concomitant]
     Active Substance: GLUCOSAMINE
     Indication: PRODUCT USED FOR UNKNOWN INDICATION
     Dosage: UNK
  29. LEVOTHYROXINE. [Concomitant]
     Active Substance: LEVOTHYROXINE
     Indication: PRODUCT USED FOR UNKNOWN INDICATION
     Dosage: UNK
  30. VESICARE [Concomitant]
     Active Substance: SOLIFENACIN SUCCINATE
     Indication: PRODUCT USED FOR UNKNOWN INDICATION
     Dosage: UNK
  31. HYPROMELLOSE [Concomitant]
     Active Substance: HYPROMELLOSES
     Indication: PRODUCT USED FOR UNKNOWN INDICATION
     Dosage: UNK

REACTIONS (40)
  - Alopecia [Recovering/Resolving]
  - Viral infection [Unknown]
  - Laboratory test abnormal [Unknown]
  - Psychomotor hyperactivity [Not Recovered/Not Resolved]
  - Weight increased [Unknown]
  - Confusional state [Unknown]
  - Insomnia [Not Recovered/Not Resolved]
  - Weight decreased [Recovered/Resolved]
  - Constipation [Unknown]
  - Logorrhoea [Unknown]
  - Headache [Unknown]
  - Metastasis [Unknown]
  - Dry skin [Not Recovered/Not Resolved]
  - Pruritus [Recovered/Resolved]
  - Nasopharyngitis [Not Recovered/Not Resolved]
  - Haematocrit decreased [Not Recovered/Not Resolved]
  - Mass [Unknown]
  - Respiratory tract congestion [Unknown]
  - Pyrexia [Recovered/Resolved]
  - Blue toe syndrome [Unknown]
  - Red cell distribution width increased [Not Recovered/Not Resolved]
  - Platelet count decreased [Recovered/Resolved]
  - Bone cyst [Unknown]
  - Malignant neoplasm progression [Unknown]
  - Rhinorrhoea [Recovered/Resolved]
  - Nausea [Not Recovered/Not Resolved]
  - Diarrhoea [Recovered/Resolved]
  - Vomiting [Unknown]
  - Anaemia [Recovering/Resolving]
  - Bone neoplasm [Unknown]
  - Cough [Recovered/Resolved]
  - Red blood cell count decreased [Not Recovered/Not Resolved]
  - Malaise [Unknown]
  - Neuropathy peripheral [Not Recovered/Not Resolved]
  - Taste disorder [Recovered/Resolved]
  - Mean cell volume increased [Not Recovered/Not Resolved]
  - Dysphonia [Recovered/Resolved]
  - Mean cell haemoglobin increased [Not Recovered/Not Resolved]
  - Dry mouth [Unknown]
  - Contrast media allergy [Unknown]

NARRATIVE: CASE EVENT DATE: 201905
